FAERS Safety Report 8540441-4 (Version None)
Quarter: 2012Q3

REPORT INFORMATION
  Report Type: 
  Country: None (occurrence: None)
  Receive Date: 20120726
  Receipt Date: 20110708
  Transmission Date: 20120928
  Serious: No
  Sender: FDA-Public Use
  Company Number: US-ASTRAZENECA-2011SE41005

PATIENT
  Sex: Female

DRUGS (2)
  1. SEROQUEL [Suspect]
     Route: 048
     Dates: start: 20090101, end: 20110706
  2. SEROQUEL [Suspect]
     Route: 048
     Dates: end: 20110706

REACTIONS (2)
  - INSOMNIA [None]
  - DRUG DOSE OMISSION [None]
